FAERS Safety Report 7388305 (Version 3)
Quarter: 2013Q1

REPORT INFORMATION
  Report Type: Spontaneous
  Country: SE (occurrence: SE)
  Receive Date: 20100514
  Receipt Date: 20130305
  Transmission Date: 20140127
  Serious: Yes (Hospitalization)
  Sender: FDA-Public Use
  Company Number: SE-JNJFOC-20100505231

PATIENT
  Sex: Male

DRUGS (3)
  1. INFLIXIMAB [Suspect]
     Indication: RHEUMATOID ARTHRITIS
     Dosage: 10 YEARS
     Route: 042
     Dates: start: 20000328, end: 20091102
  2. METHOTREXATE [Suspect]
     Indication: RHEUMATOID ARTHRITIS
     Dosage: 8 MONTHS
     Route: 048
     Dates: start: 20000328, end: 20091101
  3. PREDNISONE [Concomitant]

REACTIONS (1)
  - Bladder cancer [Unknown]
